FAERS Safety Report 23714972 (Version 1)
Quarter: 2024Q2

REPORT INFORMATION
  Report Type: Other
  Country: AU (occurrence: None)
  Receive Date: 20240406
  Receipt Date: 20240406
  Transmission Date: 20240716
  Serious: Yes (Hospitalization, Disabling)
  Sender: FDA-Public Use
  Company Number: AU-ROCHE-3176351

PATIENT
  Age: 70 Year
  Sex: Male

DRUGS (3)
  1. OCREVUS [Suspect]
     Active Substance: OCRELIZUMAB
     Indication: Multiple sclerosis
     Route: 042
     Dates: start: 20220907, end: 20220907
  2. OCREVUS [Suspect]
     Active Substance: OCRELIZUMAB
     Route: 042
     Dates: start: 20230317, end: 20230317
  3. PANADOL [Concomitant]
     Active Substance: ACETAMINOPHEN

REACTIONS (7)
  - Visual impairment [Recovered/Resolved]
  - Hypertension [Not Recovered/Not Resolved]
  - Dry mouth [Unknown]
  - Blood pressure increased [Not Recovered/Not Resolved]
  - Multiple sclerosis [Recovering/Resolving]
  - Diplopia [Not Recovered/Not Resolved]
  - Infection [Unknown]

NARRATIVE: CASE EVENT DATE: 20230920
